FAERS Safety Report 11611575 (Version 2)
Quarter: 2016Q1

REPORT INFORMATION
  Report Type: Report from Study
  Country: US (occurrence: US)
  Receive Date: 20151008
  Receipt Date: 20160112
  Transmission Date: 20160525
  Serious: Yes (Other)
  Sender: FDA-Public Use
  Company Number: US-AMGEN-USASL2015100992

PATIENT
  Age: 40 Year
  Sex: Female

DRUGS (1)
  1. ENBREL [Suspect]
     Active Substance: ETANERCEPT
     Indication: RHEUMATOID ARTHRITIS
     Dosage: 50 MG, QWK
     Route: 065
     Dates: start: 201501

REACTIONS (5)
  - Headache [Unknown]
  - Inappropriate schedule of drug administration [Not Recovered/Not Resolved]
  - Infection susceptibility increased [Unknown]
  - Disease susceptibility [Unknown]
  - Cough [Unknown]

NARRATIVE: CASE EVENT DATE: 2015
